FAERS Safety Report 20185866 (Version 1)
Quarter: 2021Q4

REPORT INFORMATION
  Report Type: Spontaneous
  Country: US (occurrence: US)
  Receive Date: 20211215
  Receipt Date: 20211215
  Transmission Date: 20220303
  Serious: Yes (Death, Other)
  Sender: FDA-Public Use
  Company Number: US-AMGEN-USASP2021196066

PATIENT
  Age: 16 Year
  Sex: Male

DRUGS (5)
  1. FILGRASTIM [Suspect]
     Active Substance: FILGRASTIM
     Indication: Aplastic anaemia
     Dosage: UNK
     Route: 065
  2. FILGRASTIM [Suspect]
     Active Substance: FILGRASTIM
     Indication: Off label use
  3. LAPINE T-LYMPHOCYTE IMMUNE GLOBULIN [Concomitant]
     Active Substance: LAPINE T-LYMPHOCYTE IMMUNE GLOBULIN
     Dosage: UNK
  4. CYCLOSPORINE [Concomitant]
     Active Substance: CYCLOSPORINE
     Dosage: UNK
  5. PENTAMIDINE [Concomitant]
     Active Substance: PENTAMIDINE
     Dosage: UNK

REACTIONS (7)
  - Death [Fatal]
  - Renal injury [Unknown]
  - Acute lung injury [Unknown]
  - Infection [Unknown]
  - Neuralgia [Unknown]
  - General physical health deterioration [Unknown]
  - Off label use [Unknown]
